FAERS Safety Report 9931677 (Version 1)
Quarter: 2014Q1

REPORT INFORMATION
  Report Type: Spontaneous
  Country: US (occurrence: US)
  Receive Date: 20140228
  Receipt Date: 20140228
  Transmission Date: 20141002
  Serious: Yes (Other)
  Sender: FDA-Public Use
  Company Number: US-JNJFOC-20140212448

PATIENT
  Age: 63 Year
  Sex: Male

DRUGS (3)
  1. XARELTO [Suspect]
     Indication: CEREBROVASCULAR ACCIDENT PROPHYLAXIS
     Route: 048
     Dates: start: 201401, end: 201401
  2. XARELTO [Suspect]
     Indication: ATRIAL FIBRILLATION
     Route: 048
     Dates: start: 201401, end: 201401
  3. ASPIRIN [Concomitant]
     Route: 048

REACTIONS (3)
  - Bladder cancer [Not Recovered/Not Resolved]
  - Blood urine present [Unknown]
  - Therapeutic response increased [Unknown]
